FAERS Safety Report 9369033 (Version 2)
Quarter: 2013Q3

REPORT INFORMATION
  Report Type: Report from Study
  Country: BR (occurrence: BR)
  Receive Date: 20130626
  Receipt Date: 20130725
  Transmission Date: 20140515
  Serious: Yes (Other)
  Sender: FDA-Public Use
  Company Number: PHHY2013BR065158

PATIENT
  Age: 58 Year
  Sex: Female

DRUGS (3)
  1. DIOVAN HCT [Suspect]
     Indication: HYPERTENSION
     Dosage: 1 DF (160/25MG), DAILY
     Route: 048
     Dates: end: 20120416
  2. LOSARTAN [Concomitant]
     Indication: HYPERTENSION
     Dosage: 2 DF (50MG), DAILY
     Route: 048
     Dates: start: 201204
  3. ASPIRIN [Concomitant]
     Indication: ANTICOAGULANT THERAPY
     Dosage: 1 DF (100MG), DAILY
     Route: 048

REACTIONS (2)
  - Venous occlusion [Recovered/Resolved]
  - Glaucoma [Recovering/Resolving]
